FAERS Safety Report 12443237 (Version 1)
Quarter: 2020Q3

REPORT INFORMATION
  Report Type: Report from Study
  Country: IT (occurrence: IT)
  Receive Date: 20160607
  Receipt Date: 20160607
  Transmission Date: 20201104
  Serious: Yes (Hospitalization)
  Sender: FDA-Public Use
  Company Number: IT-JNJFOC-20160602315

PATIENT
  Age: 67 Year
  Sex: Female
  Weight: 68 kg

DRUGS (4)
  1. DOXORUBICIN HYRDOCHOLRIDE [Suspect]
     Active Substance: DOXORUBICIN HYDROCHLORIDE
     Route: 042
  2. DOXORUBICIN HYRDOCHOLRIDE [Suspect]
     Active Substance: DOXORUBICIN HYDROCHLORIDE
     Indication: OVARIAN CANCER
     Dosage: DOSE: 50 UNITS UNSPECIFIED
     Route: 042
     Dates: start: 20160418
  3. TRABECTEDIN [Suspect]
     Active Substance: TRABECTEDIN
     Route: 042
  4. TRABECTEDIN [Suspect]
     Active Substance: TRABECTEDIN
     Indication: OVARIAN CANCER
     Dosage: DOSE: 1.9 UNITS UNSPECIFIED
     Route: 042
     Dates: start: 20160418

REACTIONS (1)
  - Carotid artery perforation [Recovered/Resolved]

NARRATIVE: CASE EVENT DATE: 20160530
